FAERS Safety Report 5659104-8 (Version None)
Quarter: 2008Q1

REPORT INFORMATION
  Report Type: 
  Country: None (occurrence: None)
  Receive Date: 20080219
  Receipt Date: 20071018
  Transmission Date: 20080703
  Serious: No
  Sender: FDA-Public Use
  Company Number: WAES 0709USA00268

PATIENT
  Age: 64 Year
  Sex: Male
  Weight: 97.977 kg

DRUGS (8)
  1. JANUVIA [Suspect]
     Indication: DIABETES MELLITUS
     Dosage: 50 MG/DAILY/PO
     Route: 048
     Dates: start: 20070323
  2. MOBIC [Concomitant]
  3. NEURONTIN [Concomitant]
  4. PROCARDIA [Concomitant]
  5. SYNTHROID [Concomitant]
  6. TOPROL-XL [Concomitant]
  7. LISINOPRIL [Concomitant]
  8. TIMOLOL MALEATE [Concomitant]

REACTIONS (4)
  - MIGRAINE [None]
  - PHOTOPSIA [None]
  - SINUS CONGESTION [None]
  - VISION BLURRED [None]
